FAERS Safety Report 21258692 (Version 5)
Quarter: 2022Q4

REPORT INFORMATION
  Report Type: Report from Study
  Country: CN (occurrence: CN)
  Receive Date: 20220826
  Receipt Date: 20221018
  Transmission Date: 20230113
  Serious: Yes (Hospitalization)
  Sender: FDA-Public Use
  Company Number: CN-BRISTOL-MYERS SQUIBB COMPANY-2022-095463

PATIENT
  Age: 71 Year
  Sex: Male
  Weight: 73 kg

DRUGS (17)
  1. LENALIDOMIDE [Suspect]
     Active Substance: LENALIDOMIDE
     Indication: Non-Hodgkin^s lymphoma
     Route: 048
     Dates: start: 20220421, end: 20220816
  2. MOSUNETUZUMAB [Suspect]
     Active Substance: MOSUNETUZUMAB
     Indication: Non-Hodgkin^s lymphoma
     Route: 042
     Dates: start: 20220329
  3. MOSUNETUZUMAB [Suspect]
     Active Substance: MOSUNETUZUMAB
     Route: 042
     Dates: start: 20220816
  4. METOPROLOL SUCCINATE [Concomitant]
     Active Substance: METOPROLOL SUCCINATE
     Indication: Arrhythmia
     Route: 048
     Dates: start: 20220327
  5. MAGNESIUM ISOGLYCYRRHIZINATE [Concomitant]
     Active Substance: MAGNESIUM ISOGLYCYRRHIZINATE
     Indication: Product used for unknown indication
     Dosage: 1 IN 1 D
     Route: 042
     Dates: start: 20220721, end: 20220721
  6. MAGNESIUM ISOGLYCYRRHIZINATE [Concomitant]
     Active Substance: MAGNESIUM ISOGLYCYRRHIZINATE
     Dosage: 1 IN 1 D
     Route: 042
     Dates: start: 20220816, end: 20220817
  7. MAGNESIUM ISOGLYCYRRHIZINATE [Concomitant]
     Active Substance: MAGNESIUM ISOGLYCYRRHIZINATE
     Dosage: 1 IN 1 D
     Route: 042
     Dates: start: 20220913, end: 20220914
  8. MAGNESIUM ISOGLYCYRRHIZINATE [Concomitant]
     Active Substance: MAGNESIUM ISOGLYCYRRHIZINATE
     Dosage: 1 IN 1 D
     Route: 042
     Dates: start: 20221011, end: 20221011
  9. ILAPRAZOLE [Concomitant]
     Active Substance: ILAPRAZOLE
     Indication: Product used for unknown indication
     Dosage: 1 IN 1 D
     Route: 042
     Dates: start: 20220721, end: 20220721
  10. ILAPRAZOLE [Concomitant]
     Active Substance: ILAPRAZOLE
     Dosage: 1 IN 1 D
     Route: 042
     Dates: start: 20220816, end: 20220817
  11. ILAPRAZOLE [Concomitant]
     Active Substance: ILAPRAZOLE
     Dosage: 1 IN 1 D
     Route: 042
     Dates: start: 20220913, end: 20220914
  12. ILAPRAZOLE [Concomitant]
     Active Substance: ILAPRAZOLE
     Dosage: 1 IN 1 D
     Route: 042
     Dates: start: 20221011, end: 20221011
  13. LORATADINE [Concomitant]
     Active Substance: LORATADINE
     Indication: Rash
     Dosage: 1 IN 1 D
     Route: 048
     Dates: start: 20220620
  14. LEVOCETIRIZINE DIHYDROCHLORIDE [Concomitant]
     Active Substance: LEVOCETIRIZINE DIHYDROCHLORIDE
     Indication: Rash
     Dosage: 1 IN 1 D
     Route: 048
     Dates: start: 20220620
  15. DEXAMETHASONE SODIUM PHOSPHATE [Concomitant]
     Active Substance: DEXAMETHASONE SODIUM PHOSPHATE
     Indication: Irritability
     Route: 042
     Dates: start: 20220721, end: 20220721
  16. DEXAMETHASONE SODIUM PHOSPHATE [Concomitant]
     Active Substance: DEXAMETHASONE SODIUM PHOSPHATE
     Route: 042
     Dates: start: 20220816, end: 20220816
  17. DEXAMETHASONE SODIUM PHOSPHATE [Concomitant]
     Active Substance: DEXAMETHASONE SODIUM PHOSPHATE
     Route: 042
     Dates: start: 20221011, end: 20221011

REACTIONS (1)
  - Globulins decreased [Recovering/Resolving]

NARRATIVE: CASE EVENT DATE: 20220815
